FAERS Safety Report 6212887-0 (Version None)
Quarter: 2009Q2

REPORT INFORMATION
  Report Type: 
  Country: None (occurrence: None)
  Receive Date: 20090603
  Receipt Date: 20090519
  Transmission Date: 20091009
  Serious: Yes (Other)
  Sender: FDA-Public Use
  Company Number: BR-MEDIMMUNE-MEDI-0008359

PATIENT
  Sex: Female
  Weight: 6.2 kg

DRUGS (5)
  1. SYNAGIS [Suspect]
     Indication: PREMATURE BABY
     Dosage: UNKNOWN
  2. SYNAGIS [Suspect]
     Dosage: UNKNOWN
     Dates: start: 20081111
  3. SYNAGIS [Suspect]
     Dosage: UNKNOWN
     Dates: start: 20081215
  4. SYNAGIS [Suspect]
     Dosage: UNKNOWN
     Dates: start: 20090416
  5. SYNAGIS [Suspect]
     Dosage: UNKNOWN

REACTIONS (6)
  - BRONCHITIS [None]
  - COUGH [None]
  - EAR INFECTION [None]
  - INFLUENZA [None]
  - RHINORRHOEA [None]
  - VIRAL INFECTION [None]
